FAERS Safety Report 6431277-9 (Version None)
Quarter: 2009Q4

REPORT INFORMATION
  Report Type: 
  Country: None (occurrence: None)
  Receive Date: 20091105
  Receipt Date: 20091105
  Transmission Date: 20100525
  Serious: No
  Sender: FDA-Public Use
  Company Number: None

PATIENT
  Age: 42 Year
  Sex: Female
  Weight: 70.3075 kg

DRUGS (7)
  1. WELLBUTRIN [Suspect]
     Indication: STRESS
     Dosage: PO
     Route: 048
     Dates: start: 20010715, end: 20090915
  2. WELLBUTRIN [Suspect]
     Indication: WEIGHT CONTROL
     Dosage: PO
     Route: 048
     Dates: start: 20010715, end: 20090915
  3. EFFEXOR [Suspect]
     Indication: STRESS
     Dosage: 75MG 2X'S DAILY PO
     Route: 048
     Dates: start: 20010915, end: 20011015
  4. EFFEXOR [Suspect]
     Indication: WEIGHT CONTROL
     Dosage: 75MG 2X'S DAILY PO
     Route: 048
     Dates: start: 20010915, end: 20011015
  5. TOPAMAX [Concomitant]
  6. ALPRAZOLAM [Concomitant]
  7. DIFFERENT ANTI DEPRESSANTS COMBINATIONS [Concomitant]

REACTIONS (15)
  - AMNESIA [None]
  - BODY TEMPERATURE INCREASED [None]
  - CHILLS [None]
  - CONFUSIONAL STATE [None]
  - DIZZINESS [None]
  - FATIGUE [None]
  - FEELING ABNORMAL [None]
  - FLUSHING [None]
  - LOSS OF LIBIDO [None]
  - MENTAL IMPAIRMENT [None]
  - NERVOUS SYSTEM DISORDER [None]
  - PHOTOPSIA [None]
  - TINNITUS [None]
  - UNEVALUABLE EVENT [None]
  - VERTIGO [None]
